FAERS Safety Report 5051942-8 (Version None)
Quarter: 2006Q3

REPORT INFORMATION
  Report Type: 
  Country: None (occurrence: None)
  Receive Date: 20060711
  Receipt Date: 20060620
  Transmission Date: 20061208
  Serious: Yes (Hospitalization)
  Sender: FDA-Public Use
  Company Number: US200606002788

PATIENT
  Age: 35 Year
  Sex: Female
  Weight: 104.3 kg

DRUGS (2)
  1. ZYPREXA [Suspect]
     Dosage: 40 MG, DAILY (1/D),
     Dates: start: 19970101, end: 20010701
  2. WELLBUTRIN [Concomitant]

REACTIONS (11)
  - ACTIVITIES OF DAILY LIVING IMPAIRED [None]
  - BLOOD CHOLESTEROL ABNORMAL [None]
  - BLOOD TRIGLYCERIDES INCREASED [None]
  - DIABETES MELLITUS [None]
  - DYSPNOEA [None]
  - HYPERTENSION [None]
  - HYPOGLYCAEMIA [None]
  - MYOCARDIAL INFARCTION [None]
  - MYOCARDIAL ISCHAEMIA [None]
  - PRESCRIBED OVERDOSE [None]
  - SYNCOPE [None]
